FAERS Safety Report 15434801 (Version 1)
Quarter: 2018Q3

REPORT INFORMATION
  Report Type: Spontaneous
  Country: US (occurrence: US)
  Receive Date: 20180922
  Receipt Date: 20180922
  Transmission Date: 20181010
  Serious: Yes (Disabling)
  Sender: FDA-Public Use
  Company Number: None

PATIENT
  Age: 72 Year
  Sex: Female
  Weight: 58.05 kg

DRUGS (4)
  1. TREMFYA [Concomitant]
     Active Substance: GUSELKUMAB
  2. ADVIL LIQUID [Concomitant]
  3. RESTASIS [Concomitant]
     Active Substance: CYCLOSPORINE
  4. TREMFYA [Suspect]
     Active Substance: GUSELKUMAB
     Indication: PSORIASIS
     Dosage: ?          OTHER FREQUENCY:EVERY 2 MONTHS;?
     Route: 030

REACTIONS (1)
  - Fungal skin infection [None]

NARRATIVE: CASE EVENT DATE: 20180921
